FAERS Safety Report 15012697 (Version 1)
Quarter: 2018Q2

REPORT INFORMATION
  Report Type: Spontaneous
  Country: DE (occurrence: DE)
  Receive Date: 20180614
  Receipt Date: 20180614
  Transmission Date: 20180711
  Serious: Yes (Hospitalization)
  Sender: FDA-Public Use
  Company Number: DE-TEVA-2018-DE-907643

PATIENT
  Age: 72 Year
  Sex: Female

DRUGS (6)
  1. TORASEMID [Concomitant]
     Active Substance: TORSEMIDE
     Dosage: 0.5-0.5-0-0
     Route: 065
  2. CLOPIDOGREL [Suspect]
     Active Substance: CLOPIDOGREL BISULFATE
     Dosage: 1-0-0-0
     Route: 065
  3. TRIMIPRAMIN [Concomitant]
     Active Substance: TRIMIPRAMINE MALEATE
     Dosage: 0-0-0-1
     Route: 065
  4. PANTOPRAZOL [Concomitant]
     Active Substance: PANTOPRAZOLE SODIUM
     Dosage: 1-0-0-0
     Route: 065
  5. LISIBETA COMP [Concomitant]
     Dosage: 20|12.5 MG, 1-0-0-0
     Route: 065
  6. LIORESAL [Concomitant]
     Active Substance: BACLOFEN
     Route: 065

REACTIONS (2)
  - Fatigue [Unknown]
  - General physical health deterioration [Unknown]
